FAERS Safety Report 13779533 (Version 6)
Quarter: 2017Q4

REPORT INFORMATION
  Report Type: Report from Study
  Country: US (occurrence: US)
  Receive Date: 20170721
  Receipt Date: 20171017
  Transmission Date: 20180320
  Serious: Yes (Hospitalization, Other)
  Sender: FDA-Public Use
  Company Number: US-ARIAD-2017US008538

PATIENT
  Sex: Male
  Weight: 122 kg

DRUGS (1)
  1. ICLUSIG [Suspect]
     Active Substance: PONATINIB
     Indication: MYELOID LEUKAEMIA
     Dosage: 15 MG, QD
     Route: 048
     Dates: start: 201604

REACTIONS (5)
  - Drug ineffective [Unknown]
  - Rash vesicular [Unknown]
  - Skin exfoliation [Unknown]
  - Hospitalisation [Unknown]
  - Epilepsy [Not Recovered/Not Resolved]
